FAERS Safety Report 5902460-3 (Version None)
Quarter: 2008Q3

REPORT INFORMATION
  Report Type: 
  Country: None (occurrence: None)
  Receive Date: 20080919
  Receipt Date: 20080723
  Transmission Date: 20090109
  Serious: No
  Sender: FDA-Public Use
  Company Number: US-WYE-H05250108

PATIENT
  Age: 61 Year
  Sex: Female
  Weight: 67.65 kg

DRUGS (3)
  1. PRISTIQ [Suspect]
     Indication: DEPRESSION
     Dosage: 50 MG (FREQUENCY UNSPECIFIED), ORAL
     Route: 048
     Dates: start: 20080601, end: 20080723
  2. LORCET-HD [Concomitant]
  3. VALIUM [Concomitant]

REACTIONS (5)
  - DISORIENTATION [None]
  - DIZZINESS [None]
  - EYE INFECTION [None]
  - OCULAR HYPERAEMIA [None]
  - VISION BLURRED [None]
